FAERS Safety Report 7637439-7 (Version None)
Quarter: 2011Q3

REPORT INFORMATION
  Report Type: 
  Country: None (occurrence: None)
  Receive Date: 20110726
  Receipt Date: 20110718
  Transmission Date: 20111222
  Serious: Yes (Disabling, Other)
  Sender: FDA-Public Use
  Company Number: US-PFIZER INC-2010006446

PATIENT
  Sex: Male

DRUGS (3)
  1. CHANTIX [Suspect]
     Indication: SMOKING CESSATION THERAPY
     Dosage: UNK
     Dates: start: 20071001, end: 20071020
  2. LIPITOR [Concomitant]
     Indication: BLOOD CHOLESTEROL INCREASED
     Dosage: UNK
     Dates: start: 20070901, end: 20110301
  3. QUINAPRIL [Concomitant]
     Dosage: UNK
     Dates: start: 20070901, end: 20110301

REACTIONS (9)
  - DIABETES MELLITUS [None]
  - AGITATION [None]
  - CONFUSIONAL STATE [None]
  - SUICIDE ATTEMPT [None]
  - DEPRESSION [None]
  - IMPAIRED DRIVING ABILITY [None]
  - ANXIETY [None]
  - AGGRESSION [None]
  - MOOD SWINGS [None]
